FAERS Safety Report 23723121 (Version 3)
Quarter: 2024Q3

REPORT INFORMATION
  Report Type: Report from Study
  Country: US (occurrence: US)
  Receive Date: 20240409
  Receipt Date: 20240712
  Transmission Date: 20241016
  Serious: Yes (Other)
  Sender: SANDOZ
  Company Number: US-SANDOZ-SDZ2024US037426

PATIENT
  Sex: Female

DRUGS (1)
  1. HYRIMOZ [Suspect]
     Active Substance: ADALIMUMAB-ADAZ
     Indication: Rheumatoid arthritis
     Dosage: 40 MG, ONCE EVERY TWO WEEKS
     Route: 058

REACTIONS (8)
  - Macular degeneration [Unknown]
  - Weight decreased [Unknown]
  - Fatigue [Unknown]
  - Musculoskeletal stiffness [Unknown]
  - Pain [Unknown]
  - Injection site pain [Unknown]
  - Pruritus [Unknown]
  - Flushing [Unknown]
